FAERS Safety Report 12248962 (Version 1)
Quarter: 2016Q2

REPORT INFORMATION
  Report Type: Report from Study
  Country: CN (occurrence: CN)
  Receive Date: 20160408
  Receipt Date: 20160408
  Transmission Date: 20160815
  Serious: Yes (Hospitalization)
  Sender: FDA-Public Use
  Company Number: CN-ASTRAZENECA-2016SE35884

PATIENT

DRUGS (1)
  1. GEFITINIB [Suspect]
     Active Substance: GEFITINIB
     Route: 048

REACTIONS (1)
  - Leukopenia [Unknown]
